FAERS Safety Report 10204116 (Version 2)
Quarter: 2014Q2

REPORT INFORMATION
  Report Type: Report from Study
  Country: US (occurrence: US)
  Receive Date: 20140529
  Receipt Date: 20140606
  Transmission Date: 20141212
  Serious: Yes (Other)
  Sender: FDA-Public Use
  Company Number: US-SA-2014SA064995

PATIENT
  Age: 87 Year
  Sex: Male

DRUGS (11)
  1. MULTAQ [Suspect]
     Indication: CARDIOVASCULAR DISORDER
     Route: 065
     Dates: start: 201402, end: 20140505
  2. LIPITOR [Concomitant]
     Dates: start: 20071113
  3. WARFARIN [Concomitant]
  4. METOPROLOL [Concomitant]
  5. POTASSIUM [Concomitant]
  6. LASIX [Concomitant]
  7. LORAZEPAM [Concomitant]
  8. TEMAZEPAM [Concomitant]
     Indication: SLEEP DISORDER
  9. FINASTERIDE [Concomitant]
  10. SINEMET [Concomitant]
     Dosage: 25/100 MG THREE TIMES DAILY
  11. MULTIVITAMINS W/MINERALS [Concomitant]

REACTIONS (2)
  - Atrial fibrillation [Recovered/Resolved]
  - Drug ineffective [Unknown]
